FAERS Safety Report 8612881-6 (Version None)
Quarter: 2012Q3

REPORT INFORMATION
  Report Type: 
  Country: None (occurrence: None)
  Receive Date: 20120822
  Receipt Date: 20110915
  Transmission Date: 20120928
  Serious: No
  Sender: FDA-Public Use
  Company Number: US-ASTRAZENECA-2011SE47226

PATIENT
  Age: 68 Year
  Sex: Female

DRUGS (6)
  1. LEVOTHYROXINE SODIUM [Concomitant]
     Indication: THYROID DISORDER
  2. FISH OIL [Concomitant]
  3. VITAMIN B-12 [Concomitant]
     Dosage: MONTHLY
  4. SYMBICORT [Suspect]
     Indication: DYSPNOEA
     Dosage: 80/4.5 MCG FREQUENCY UNKNOWN
     Route: 055
  5. LOVASTATIN [Concomitant]
  6. ASPIRIN [Concomitant]

REACTIONS (5)
  - WRONG TECHNIQUE IN DRUG USAGE PROCESS [None]
  - SLEEP APNOEA SYNDROME [None]
  - MALAISE [None]
  - DRUG DOSE OMISSION [None]
  - DYSPNOEA [None]
